FAERS Safety Report 4558345-0 (Version None)
Quarter: 2005Q1

REPORT INFORMATION
  Report Type: 
  Country: None (occurrence: None)
  Receive Date: 20050121
  Receipt Date: 20041129
  Transmission Date: 20050727
  Serious: Yes (Hospitalization)
  Sender: FDA-Public Use
  Company Number: PHBS2004NO16124

PATIENT
  Age: 59 Year
  Sex: Male

DRUGS (7)
  1. KALEORID [Concomitant]
     Dosage: 1 DF, TID
     Route: 065
  2. DIURAL [Concomitant]
     Dosage: 40 MG, BID
     Route: 048
  3. NEXIUM [Concomitant]
     Dosage: 40 MG, QD
     Route: 048
  4. LESCOL [Suspect]
     Dosage: 80 MG, QD
     Route: 048
     Dates: start: 20031001, end: 20041015
  5. AVANDIA [Suspect]
     Indication: DIABETES MELLITUS
     Dosage: 4 MG, QD
     Route: 048
     Dates: start: 20041015, end: 20041025
  6. PREDNISOLONE [Concomitant]
     Indication: POLYMYALGIA RHEUMATICA
     Dosage: 5 MG, QD
     Dates: start: 19980101
  7. AMARYL [Concomitant]
     Indication: DIABETES MELLITUS
     Dosage: 3 MG, QD
     Route: 048
     Dates: start: 20010101

REACTIONS (4)
  - BLOOD CREATINE PHOSPHOKINASE INCREASED [None]
  - DRUG INTERACTION [None]
  - MUSCULAR WEAKNESS [None]
  - MYOSITIS [None]
